FAERS Safety Report 7964362-0 (Version None)
Quarter: 2011Q4

REPORT INFORMATION
  Report Type: 
  Country: None (occurrence: None)
  Receive Date: 20111208
  Receipt Date: 20111206
  Transmission Date: 20120403
  Serious: Yes (Other)
  Sender: FDA-Public Use
  Company Number: US-PFIZER INC-2011298659

PATIENT
  Sex: Female
  Weight: 81.633 kg

DRUGS (4)
  1. ATENOLOL [Concomitant]
     Indication: HYPERTENSION
     Dosage: 40 MG, 2X/DAY
  2. XANAX [Suspect]
     Indication: PANIC ATTACK
     Dosage: UNK
     Route: 048
  3. METFORMIN [Concomitant]
     Indication: DIABETES MELLITUS
     Dosage: 500 MG, 2X/DAY
  4. XANAX [Suspect]
     Indication: MUSCLE SPASMS
     Dosage: 2 MG, EVERY 4 HRS
     Route: 048

REACTIONS (5)
  - HIP FRACTURE [None]
  - FIBULA FRACTURE [None]
  - PELVIC FRACTURE [None]
  - ROAD TRAFFIC ACCIDENT [None]
  - FEMUR FRACTURE [None]
